FAERS Safety Report 22689157 (Version 6)
Quarter: 2025Q3

REPORT INFORMATION
  Report Type: Report from Study
  Country: JP (occurrence: JP)
  Receive Date: 20230710
  Receipt Date: 20250903
  Transmission Date: 20251020
  Serious: Yes (Hospitalization, Other)
  Sender: TAKEDA
  Company Number: JP-TAKEDA-2023TJP009000

PATIENT
  Age: 38 Year
  Sex: Female
  Weight: 52.4 kg

DRUGS (15)
  1. ICATIBANT [Suspect]
     Active Substance: ICATIBANT ACETATE
     Indication: Hereditary angioedema
  2. ICATIBANT [Suspect]
     Active Substance: ICATIBANT ACETATE
  3. TAKHZYRO [Suspect]
     Active Substance: LANADELUMAB-FLYO
     Indication: Hereditary angioedema
     Dosage: 300 MILLIGRAM, Q2WEEKS
     Dates: start: 2020, end: 20220913
  4. BERINERT P [Suspect]
     Active Substance: HUMAN C1-ESTERASE INHIBITOR
     Indication: Hereditary angioedema
  5. BERINERT P [Suspect]
     Active Substance: HUMAN C1-ESTERASE INHIBITOR
  6. BERINERT P [Suspect]
     Active Substance: HUMAN C1-ESTERASE INHIBITOR
  7. TRANEXAMIC ACID [Concomitant]
     Active Substance: TRANEXAMIC ACID
     Indication: Hereditary angioedema
  8. VONOPRAZAN FUMARATE [Concomitant]
     Active Substance: VONOPRAZAN FUMARATE
     Indication: Prophylaxis
  9. DESLORATADINE [Concomitant]
     Active Substance: DESLORATADINE
     Indication: Product used for unknown indication
  10. BILASTINE [Concomitant]
     Active Substance: BILASTINE
     Indication: Product used for unknown indication
  11. PREDNISOLONE VALERATE ACETATE [Concomitant]
     Active Substance: PREDNISOLONE VALERATE ACETATE
     Indication: Product used for unknown indication
  12. DUPIXENT [Concomitant]
     Active Substance: DUPILUMAB
     Indication: Product used for unknown indication
  13. NASONEX [Concomitant]
     Active Substance: MOMETASONE FUROATE
     Indication: Product used for unknown indication
  14. CALONAL [Concomitant]
     Active Substance: ACETAMINOPHEN
     Indication: Product used for unknown indication
  15. FLUTIFORM [Concomitant]
     Active Substance: FLUTIFORM
     Indication: Product used for unknown indication

REACTIONS (42)
  - Blood pressure decreased [Recovered/Resolved]
  - Angioedema [Unknown]
  - Blindness transient [Unknown]
  - Nausea [Recovered/Resolved]
  - Physical deconditioning [Unknown]
  - Haemorrhage subcutaneous [Unknown]
  - Loss of consciousness [Recovered/Resolved]
  - Respiratory arrest [Recovered/Resolved]
  - Insomnia [Unknown]
  - Emotional distress [Unknown]
  - Hereditary angioedema [Unknown]
  - Stress [Unknown]
  - Fall [Unknown]
  - Injection site nerve damage [Not Recovered/Not Resolved]
  - Hypoaesthesia [Not Recovered/Not Resolved]
  - Pain [Unknown]
  - Poor venous access [Unknown]
  - Discouragement [Unknown]
  - Physical deconditioning [Not Recovered/Not Resolved]
  - Feeling abnormal [Not Recovered/Not Resolved]
  - Feeding disorder [Not Recovered/Not Resolved]
  - Dysphonia [Not Recovered/Not Resolved]
  - Coronavirus test positive [Unknown]
  - Parosmia [Unknown]
  - Taste disorder [Unknown]
  - Haemoptysis [Unknown]
  - Post procedural complication [Unknown]
  - Injury associated with device [Unknown]
  - Weight fluctuation [Unknown]
  - Malaise [Unknown]
  - Dyspnoea [Unknown]
  - Eye pain [Unknown]
  - Diarrhoea [Unknown]
  - Injection site swelling [Not Recovered/Not Resolved]
  - Hypersensitivity [Unknown]
  - Headache [Unknown]
  - Trigger finger [Unknown]
  - Palpitations [Recovered/Resolved]
  - Blood pressure decreased [Recovered/Resolved]
  - Abdominal pain [Recovered/Resolved]
  - Diarrhoea [Recovered/Resolved]
  - Dizziness [Recovered/Resolved]

NARRATIVE: CASE EVENT DATE: 20220201
